FAERS Safety Report 5763835-9 (Version None)
Quarter: 2008Q2

REPORT INFORMATION
  Report Type: 
  Country: None (occurrence: None)
  Receive Date: 20080606
  Receipt Date: 20080606
  Transmission Date: 20081010
  Serious: Yes (Hospitalization)
  Sender: FDA-Public Use
  Company Number: None

PATIENT
  Sex: Male
  Weight: 78.0187 kg

DRUGS (1)
  1. ATAZANAVIR SULFATE [Suspect]
     Indication: HIV INFECTION
     Dosage: 300 MG ONCE DAILY PO
     Route: 048
     Dates: start: 20040615, end: 20080411

REACTIONS (3)
  - FLANK PAIN [None]
  - HAEMATURIA [None]
  - NEPHROLITHIASIS [None]
